FAERS Safety Report 21221062 (Version 3)
Quarter: 2023Q1

REPORT INFORMATION
  Report Type: Report from Study
  Country: US (occurrence: US)
  Receive Date: 20220817
  Receipt Date: 20230110
  Transmission Date: 20230417
  Serious: Yes (Hospitalization, Other)
  Sender: FDA-Public Use
  Company Number: US-TAKEDA-2022TUS056610

PATIENT
  Sex: Female

DRUGS (4)
  1. PONATINIB [Suspect]
     Active Substance: PONATINIB
     Indication: Acute lymphocytic leukaemia recurrent
     Dosage: 30 MILLIGRAM, QD
     Route: 048
  2. SPRYCEL [Concomitant]
     Active Substance: DASATINIB
     Route: 065
  3. BLINCYTO [Concomitant]
     Active Substance: BLINATUMOMAB
  4. PANTOPRAZOLE SODIUM [Concomitant]
     Active Substance: PANTOPRAZOLE SODIUM
     Dosage: UNK
     Route: 065

REACTIONS (7)
  - Seizure [Unknown]
  - COVID-19 [Unknown]
  - Bell^s palsy [Unknown]
  - Intracranial aneurysm [Unknown]
  - Dyspnoea [Unknown]
  - Abdominal discomfort [Unknown]
  - Cough [Unknown]
